FAERS Safety Report 14408570 (Version 1)
Quarter: 2018Q1

REPORT INFORMATION
  Report Type: Spontaneous
  Country: FR (occurrence: FR)
  Receive Date: 20180118
  Receipt Date: 20180118
  Transmission Date: 20180509
  Serious: Yes (Hospitalization)
  Sender: FDA-Public Use
  Company Number: FR-MERCK KGAA-2040322

PATIENT
  Age: 60 Year
  Sex: Female

DRUGS (4)
  1. NOVOTHYROX [Suspect]
     Active Substance: LEVOTHYROXINE SODIUM
     Indication: PRODUCT USED FOR UNKNOWN INDICATION
     Route: 048
     Dates: start: 20170910
  2. AMLODIPINE [Suspect]
     Active Substance: AMLODIPINE BESYLATE
     Route: 048
     Dates: start: 20170909
  3. LORMETAZEPAM [Suspect]
     Active Substance: LORMETAZEPAM
     Route: 048
     Dates: start: 20170909
  4. TRAMADOL. [Suspect]
     Active Substance: TRAMADOL
     Route: 048
     Dates: start: 20170909

REACTIONS (3)
  - Confusional state [Recovered/Resolved]
  - Poisoning deliberate [Recovered/Resolved]
  - Somnolence [Recovered/Resolved]

NARRATIVE: CASE EVENT DATE: 20170910
